FAERS Safety Report 5088681-3 (Version None)
Quarter: 2006Q3

REPORT INFORMATION
  Report Type: 
  Country: None (occurrence: None)
  Receive Date: 20060825
  Receipt Date: 20060819
  Transmission Date: 20061208
  Serious: Yes (Other)
  Sender: FDA-Public Use
  Company Number: US-AVENTIS-200616959US

PATIENT
  Sex: Male

DRUGS (3)
  1. APIDRA [Suspect]
     Dosage: DOSE: UNK
  2. OPTICLIK (INSULIN INJECTION PEN) [Suspect]
     Dosage: DOSE: UNK
  3. LANTUS [Concomitant]
     Dosage: DOSE: UNK

REACTIONS (3)
  - LOSS OF CONSCIOUSNESS [None]
  - PHARMACEUTICAL PRODUCT COMPLAINT [None]
  - WRONG TECHNIQUE IN DRUG USAGE PROCESS [None]
